FAERS Safety Report 4497130-5 (Version None)
Quarter: 2004Q3

REPORT INFORMATION
  Report Type: 
  Country: None (occurrence: None)
  Receive Date: 20040927
  Receipt Date: 20040623
  Transmission Date: 20050211
  Serious: No
  Sender: FDA-Public Use
  Company Number: USA040568624

PATIENT
  Age: 37 Year
  Sex: Male
  Weight: 105 kg

DRUGS (12)
  1. STRATTERA [Suspect]
     Indication: ATTENTION DEFICIT/HYPERACTIVITY DISORDER
     Dosage: 120 MG/1 DAY
     Dates: start: 20040301, end: 20040620
  2. PROZAC [Suspect]
     Indication: DEPRESSION
     Dosage: 80 MG
     Dates: start: 20000501, end: 20001001
  3. ASPIRIN [Concomitant]
  4. NEXIUM [Concomitant]
  5. PROSCAR [Concomitant]
  6. LOPERAMIDE HCL [Concomitant]
  7. BEXTRA [Concomitant]
  8. CAFFEINE [Concomitant]
  9. TRAZODONE HCL [Concomitant]
  10. CYCLOBENZAPRINE [Concomitant]
  11. LEXAPRO [Concomitant]
  12. IBUPROFEN [Concomitant]

REACTIONS (6)
  - ABNORMAL DREAMS [None]
  - ANXIETY [None]
  - DRUG INEFFECTIVE [None]
  - INSOMNIA [None]
  - PRESCRIBED OVERDOSE [None]
  - THINKING ABNORMAL [None]
